FAERS Safety Report 7003835-4 (Version None)
Quarter: 2010Q3

REPORT INFORMATION
  Report Type: 
  Country: None (occurrence: None)
  Receive Date: 20100920
  Receipt Date: 20091210
  Transmission Date: 20110219
  Serious: No
  Sender: FDA-Public Use
  Company Number: US-WYE-H12605309

PATIENT
  Sex: Female
  Weight: 83.99 kg

DRUGS (4)
  1. PRISTIQ [Suspect]
     Indication: DEPRESSION
     Route: 048
     Dates: start: 20091203
  2. WELLBUTRIN [Concomitant]
  3. HYDROCODONE [Concomitant]
  4. LITHIUM [Concomitant]

REACTIONS (7)
  - DIARRHOEA [None]
  - DRY MOUTH [None]
  - FATIGUE [None]
  - HEADACHE [None]
  - LETHARGY [None]
  - NAUSEA [None]
  - VOMITING [None]
